FAERS Safety Report 16991551 (Version 1)
Quarter: 2019Q4

REPORT INFORMATION
  Report Type: Other
  Country: ES (occurrence: ES)
  Receive Date: 20191104
  Receipt Date: 20191104
  Transmission Date: 20200122
  Serious: Yes (Other)
  Sender: FDA-Public Use
  Company Number: ES-TEIKOKU PHARMA USA-TPU2019-00755

PATIENT
  Age: 94 Year
  Sex: Female

DRUGS (9)
  1. TRIGON [Concomitant]
     Active Substance: TRIAMCINOLONE ACETONIDE
  2. BUPIVACAINE. [Concomitant]
     Active Substance: BUPIVACAINE
  3. DULOXETINE. [Concomitant]
     Active Substance: DULOXETINE
  4. CAPSAICIN. [Concomitant]
     Active Substance: CAPSAICIN
  5. EMLA [Concomitant]
     Active Substance: LIDOCAINE\PRILOCAINE
  6. MORPHINE [Suspect]
     Active Substance: MORPHINE
     Indication: PRODUCT USED FOR UNKNOWN INDICATION
     Route: 065
  7. LIDOCAINE PATCH 5% [Suspect]
     Active Substance: LIDOCAINE
     Indication: PRODUCT USED FOR UNKNOWN INDICATION
     Route: 065
  8. PREGABALIN. [Suspect]
     Active Substance: PREGABALIN
     Indication: PRODUCT USED FOR UNKNOWN INDICATION
     Route: 065
  9. VALACYCLOVIR [Suspect]
     Active Substance: VALACYCLOVIR HYDROCHLORIDE
     Indication: PRODUCT USED FOR UNKNOWN INDICATION
     Route: 065

REACTIONS (3)
  - Hallucination, visual [Unknown]
  - Pain [Unknown]
  - Myoclonus [Unknown]
